FAERS Safety Report 5740073-7 (Version None)
Quarter: 2008Q2

REPORT INFORMATION
  Report Type: 
  Country: None (occurrence: None)
  Receive Date: 20080516
  Receipt Date: 20080512
  Transmission Date: 20081010
  Serious: Yes (Other)
  Sender: FDA-Public Use
  Company Number: PHHY2008BR07750

PATIENT
  Age: 46 Year
  Sex: Female
  Weight: 60 kg

DRUGS (1)
  1. METHERGINE [Suspect]
     Indication: MENSTRUAL DISORDER
     Dosage: UNK, UNK
     Route: 048

REACTIONS (4)
  - ABDOMINAL PAIN [None]
  - BLOOD CALCIUM DECREASED [None]
  - BONE PAIN [None]
  - MENSTRUAL DISORDER [None]
